FAERS Safety Report 11771677 (Version 2)
Quarter: 2016Q1

REPORT INFORMATION
  Report Type: Spontaneous
  Country: US (occurrence: US)
  Receive Date: 20151124
  Receipt Date: 20160104
  Transmission Date: 20160525
  Serious: Yes (Other)
  Sender: FDA-Public Use
  Company Number: US-ASTELLAS-2015US039385

PATIENT
  Sex: Male

DRUGS (2)
  1. MYRBETRIQ [Suspect]
     Active Substance: MIRABEGRON
     Indication: URINARY INCONTINENCE
     Route: 048
     Dates: start: 20150924
  2. MYRBETRIQ [Suspect]
     Active Substance: MIRABEGRON
     Indication: URINARY INCONTINENCE
     Route: 048

REACTIONS (2)
  - Drug effect incomplete [Recovering/Resolving]
  - Liver disorder [Unknown]
